FAERS Safety Report 21066367 (Version 1)
Quarter: 2022Q3

REPORT INFORMATION
  Report Type: Spontaneous
  Country: JP (occurrence: JP)
  Receive Date: 20220711
  Receipt Date: 20220711
  Transmission Date: 20221027
  Serious: Yes (Hospitalization)
  Sender: FDA-Public Use
  Company Number: JP-DSJP-DSJ-2022-124305

PATIENT
  Age: 51 Year
  Sex: Female
  Weight: 40 kg

DRUGS (1)
  1. ENHERTU [Suspect]
     Active Substance: FAM-TRASTUZUMAB DERUXTECAN-NXKI
     Indication: Breast cancer
     Dosage: 216 MG, ONCE EVERY 3 WK
     Route: 041
     Dates: start: 20210603

REACTIONS (1)
  - Metastases to central nervous system [Unknown]
